FAERS Safety Report 8201240-6 (Version None)
Quarter: 2012Q1

REPORT INFORMATION
  Report Type: 
  Country: None (occurrence: None)
  Receive Date: 20120312
  Receipt Date: 20120305
  Transmission Date: 20120608
  Serious: No
  Sender: FDA-Public Use
  Company Number: PHEH2012US003072

PATIENT
  Sex: Female

DRUGS (8)
  1. MULTIVITAMIN [Concomitant]
  2. TASIGNA [Suspect]
     Indication: CHRONIC MYELOID LEUKAEMIA
     Dosage: 200 MG, BID
     Route: 048
     Dates: start: 20100201
  3. LEVOXYL [Concomitant]
  4. SOTALOL HCL [Concomitant]
  5. LOVAZA [Concomitant]
  6. LASIX [Concomitant]
  7. ASPIRIN [Concomitant]
  8. TASIGNA [Suspect]
     Dosage: 200 MG, QD
     Route: 048
     Dates: start: 20100926

REACTIONS (2)
  - RASH [None]
  - PRURITUS [None]
